FAERS Safety Report 11021897 (Version 2)
Quarter: 2015Q2

REPORT INFORMATION
  Report Type: Report from Study
  Country: AR (occurrence: AR)
  Receive Date: 20150413
  Receipt Date: 20150601
  Transmission Date: 20150821
  Serious: Yes (Other)
  Sender: FDA-Public Use
  Company Number: AR-BAYER-2015-120883

PATIENT
  Age: 67 Year
  Sex: Male

DRUGS (5)
  1. METFORMIN [Concomitant]
     Active Substance: METFORMIN HYDROCHLORIDE
  2. INSULIN [Concomitant]
     Active Substance: INSULIN NOS
  3. STIVARGA [Suspect]
     Active Substance: REGORAFENIB
     Indication: COLON CANCER
     Dosage: TWO PILLS DAILY
     Dates: start: 20150301, end: 20150430
  4. OMEPRAZOLE. [Concomitant]
     Active Substance: OMEPRAZOLE
  5. STIVARGA [Suspect]
     Active Substance: REGORAFENIB
     Indication: COLON CANCER
     Dosage: 2 DF, QD (2 PILLS DAILY)
     Route: 048
     Dates: start: 20150210

REACTIONS (3)
  - Metastases to liver [Not Recovered/Not Resolved]
  - Malnutrition [Not Recovered/Not Resolved]
  - Blister infected [None]

NARRATIVE: CASE EVENT DATE: 201502
